FAERS Safety Report 18037372 (Version 1)
Quarter: 2020Q3

REPORT INFORMATION
  Report Type: Spontaneous
  Country: FR (occurrence: FR)
  Receive Date: 20200717
  Receipt Date: 20200717
  Transmission Date: 20201103
  Serious: Yes (Death)
  Sender: FDA-Public Use
  Company Number: FR-TEVA-2020-FR-1800760

PATIENT
  Age: 82 Year
  Sex: Male
  Weight: 56.4 kg

DRUGS (4)
  1. PERMIXON [Concomitant]
     Active Substance: HERBALS\SAW PALMETTO
  2. ELIQUIS [Concomitant]
     Active Substance: APIXABAN
  3. TOVIAZ [Concomitant]
     Active Substance: FESOTERODINE FUMARATE
  4. CLOZAPINE. [Suspect]
     Active Substance: CLOZAPINE
     Indication: DEMENTIA WITH LEWY BODIES
     Dosage: 37.5 MILLIGRAM
     Route: 048
     Dates: start: 20200310, end: 20200507

REACTIONS (1)
  - Agranulocytosis [Fatal]

NARRATIVE: CASE EVENT DATE: 20200507
